FAERS Safety Report 8244185-8 (Version None)
Quarter: 2012Q1

REPORT INFORMATION
  Report Type: 
  Country: None (occurrence: None)
  Receive Date: 20120329
  Receipt Date: 20120326
  Transmission Date: 20120608
  Serious: Yes (Other)
  Sender: FDA-Public Use
  Company Number: ES-MERCK-1203ESP00051

PATIENT
  Age: 79 Year

DRUGS (2)
  1. HYDROCHLOROTHIAZIDE AND IRBESARTAN [Concomitant]
     Indication: HYPERTENSION
     Route: 065
     Dates: start: 20090101
  2. VYTORIN [Suspect]
     Indication: HYPERCHOLESTEROLAEMIA
     Route: 065
     Dates: start: 20101201, end: 20110601

REACTIONS (3)
  - WEIGHT DECREASED [None]
  - DYSPEPSIA [None]
  - FLATULENCE [None]
